FAERS Safety Report 14471618 (Version 1)
Quarter: 2018Q1

REPORT INFORMATION
  Report Type: Spontaneous
  Country: US (occurrence: US)
  Receive Date: 20180131
  Receipt Date: 20180131
  Transmission Date: 20180509
  Serious: Yes (Other)
  Sender: FDA-Public Use
  Company Number: US-FRESENIUS KABI-FK201801234

PATIENT
  Age: 14 Year
  Sex: Male

DRUGS (2)
  1. CARBOPLATIN (MANUFACTURER UNKNOWN) [Suspect]
     Active Substance: CARBOPLATIN
     Indication: MALIGNANT NEOPLASM OF LACRIMAL DUCT
     Route: 013
  2. DOXORUBICIN (MANUFACTURER UNKNOWN) [Suspect]
     Active Substance: DOXORUBICIN
     Indication: MALIGNANT NEOPLASM OF LACRIMAL DUCT
     Route: 013

REACTIONS (3)
  - Product use in unapproved indication [Unknown]
  - Dry eye [Unknown]
  - Off label use [Unknown]
